FAERS Safety Report 7213530-4 (Version None)
Quarter: 2010Q4

REPORT INFORMATION
  Report Type: 
  Country: None (occurrence: None)
  Receive Date: 20101229
  Receipt Date: 20101221
  Transmission Date: 20110411
  Serious: Yes (Hospitalization)
  Sender: FDA-Public Use
  Company Number: JPI-P-013303

PATIENT
  Age: 52 Year
  Sex: Male
  Weight: 79.3795 kg

DRUGS (1)
  1. XYREM [Suspect]
     Indication: CATAPLEXY
     Dosage: ORAL; 9 GM, 1 D),ORAL
     Route: 048
     Dates: start: 20050301

REACTIONS (7)
  - BLOOD BLISTER [None]
  - CONDITION AGGRAVATED [None]
  - HAEMOPTYSIS [None]
  - HEPATIC CIRRHOSIS [None]
  - PHARYNGEAL INFLAMMATION [None]
  - PHARYNGEAL OEDEMA [None]
  - POST PROCEDURAL COMPLICATION [None]
